FAERS Safety Report 6303811-0 (Version None)
Quarter: 2009Q3

REPORT INFORMATION
  Report Type: 
  Country: None (occurrence: None)
  Receive Date: 20090807
  Receipt Date: 20090807
  Transmission Date: 20100115
  Serious: Yes (Disabling)
  Sender: FDA-Public Use
  Company Number: None

PATIENT
  Age: 61 Year
  Sex: Female
  Weight: 116.9 kg

DRUGS (1)
  1. PACLITAXEL [Suspect]
     Indication: BREAST CANCER
     Dosage: 405 MG EVERY 2 WEEKS INTRAVENOUS
     Dates: start: 20090618

REACTIONS (2)
  - ABASIA [None]
  - NEUROPATHY PERIPHERAL [None]
